FAERS Safety Report 4682607-X (Version None)
Quarter: 2005Q2

REPORT INFORMATION
  Report Type: 
  Country: None (occurrence: None)
  Receive Date: 20050606
  Receipt Date: 20041206
  Transmission Date: 20051028
  Serious: Yes (Other)
  Sender: FDA-Public Use
  Company Number: PHNU2004DE04093

PATIENT
  Sex: Male

DRUGS (3)
  1. LIORESAL [Suspect]
     Indication: HEMIPARESIS
     Dosage: 5 MG, BID
     Route: 048
     Dates: start: 20041101, end: 20040101
  2. LIORESAL [Suspect]
     Dosage: 2.5 MG, BID
     Route: 048
     Dates: start: 20040101
  3. TRILEPTAL [Concomitant]
     Indication: HEMIPARESIS
     Dosage: 900MG/DAY
     Dates: start: 20041101

REACTIONS (5)
  - CONDITION AGGRAVATED [None]
  - CONFUSIONAL STATE [None]
  - GENERAL PHYSICAL HEALTH DETERIORATION [None]
  - NAUSEA [None]
  - VOMITING [None]
